FAERS Safety Report 21948349 (Version 1)
Quarter: 2023Q1

REPORT INFORMATION
  Report Type: Spontaneous
  Country: JP (occurrence: JP)
  Receive Date: 20230203
  Receipt Date: 20230203
  Transmission Date: 20230417
  Serious: Yes (Death, Other)
  Sender: FDA-Public Use
  Company Number: JP-UCBJ-CD202301132UCBPHAPROD

PATIENT
  Age: 9 Decade
  Sex: Female

DRUGS (3)
  1. LEVETIRACETAM [Suspect]
     Active Substance: LEVETIRACETAM
     Indication: Product used for unknown indication
     Dosage: UNK
     Route: 042
  2. DIAZEPAM [Concomitant]
     Active Substance: DIAZEPAM
     Indication: Seizure
     Dosage: UNK (INTRAVENOUS INJECTION)
     Route: 042
  3. DIAZEPAM [Concomitant]
     Active Substance: DIAZEPAM
     Indication: Seizure
     Dosage: UNK
     Route: 042

REACTIONS (3)
  - Seizure [Recovering/Resolving]
  - Cardiac disorder [Fatal]
  - Arrhythmia [Unknown]

NARRATIVE: CASE EVENT DATE: 20230125
